FAERS Safety Report 23895775 (Version 1)
Quarter: 2024Q2

REPORT INFORMATION
  Report Type: Spontaneous
  Country: US (occurrence: None)
  Receive Date: 20240523
  Receipt Date: 20240523
  Transmission Date: 20240716
  Serious: Yes (Life-Threatening, Hospitalization)
  Sender: FDA-Public Use
  Company Number: None

PATIENT
  Age: 82 Year
  Sex: Female
  Weight: 71.1 kg

DRUGS (3)
  1. WARFARIN [Suspect]
     Active Substance: WARFARIN
     Dosage: FREQUENCY : DAILY;?
     Route: 048
     Dates: start: 20200828
  2. ASPIRIN 81 [Concomitant]
  3. DOFETILIDE [Concomitant]

REACTIONS (10)
  - Asthenia [None]
  - Fall [None]
  - Loss of consciousness [None]
  - Haematemesis [None]
  - Melaena [None]
  - Diarrhoea [None]
  - Haemoglobin decreased [None]
  - Blood pressure systolic decreased [None]
  - Therapy interrupted [None]
  - Tumour haemorrhage [None]

NARRATIVE: CASE EVENT DATE: 20240428
